FAERS Safety Report 12233392 (Version 1)
Quarter: 2016Q2

REPORT INFORMATION
  Report Type: Report from Study
  Country: US (occurrence: US)
  Receive Date: 20160404
  Receipt Date: 20160404
  Transmission Date: 20160815
  Serious: Yes (Death, Other)
  Sender: FDA-Public Use
  Company Number: US-AUROBINDO-AUR-APL-2015-11125

PATIENT
  Sex: Male
  Weight: 3.61 kg

DRUGS (4)
  1. NICOTINE. [Concomitant]
     Active Substance: NICOTINE
     Indication: SMOKING CESSATION THERAPY
     Dosage: UNK
     Route: 065
     Dates: start: 20110312, end: 20150314
  2. RIBAVIRIN TABLET [Suspect]
     Active Substance: RIBAVIRIN
     Dosage: 400 MG, DAILY
     Route: 064
     Dates: start: 201412, end: 20150119
  3. SIMEPREVIR [Suspect]
     Active Substance: SIMEPREVIR
     Indication: HEPATITIS C
     Dosage: 150 MG, DAILY
     Route: 065
     Dates: start: 20140821, end: 20150202
  4. RIBAVIRIN TABLET [Suspect]
     Active Substance: RIBAVIRIN
     Indication: PRODUCT USED FOR UNKNOWN INDICATION
     Dosage: 400 MG, DAILY
     Route: 064
     Dates: start: 20140904, end: 201412

REACTIONS (4)
  - Foetal exposure during pregnancy [Unknown]
  - Foetal death [Fatal]
  - Congenital anomaly [Unknown]
  - Cardiac murmur [Unknown]
